FAERS Safety Report 9499148 (Version 1)
Quarter: 2013Q3

REPORT INFORMATION
  Report Type: Spontaneous
  Country: CN (occurrence: CN)
  Receive Date: 20130905
  Receipt Date: 20130905
  Transmission Date: 20140515
  Serious: Yes (Other)
  Sender: FDA-Public Use
  Company Number: CN-009507513-1309CHN000118

PATIENT
  Age: 67 Year
  Sex: Female

DRUGS (2)
  1. TIENAM [Suspect]
     Indication: PERITONITIS
     Dosage: 500 MG, BID
     Route: 042
     Dates: start: 20121128, end: 20121202
  2. TIENAM [Suspect]
     Dosage: 500 MG, QD
     Route: 042
     Dates: start: 20121202

REACTIONS (2)
  - Aphonia [Recovering/Resolving]
  - Blood creatinine increased [Unknown]
